FAERS Safety Report 8449962-6 (Version None)
Quarter: 2012Q2

REPORT INFORMATION
  Report Type: 
  Country: None (occurrence: None)
  Receive Date: 20120620
  Receipt Date: 20120615
  Transmission Date: 20120825
  Serious: Yes (Other)
  Sender: FDA-Public Use
  Company Number: PHEH2012US012009

PATIENT
  Sex: Female

DRUGS (6)
  1. PREDNISONE [Concomitant]
     Dosage: 10 MG, QD
     Route: 048
  2. CALCITRIOL [Concomitant]
     Dosage: 25 MG, QD
     Route: 048
  3. AMLODIPINE [Concomitant]
     Dosage: 10 MG,
     Route: 048
  4. PROGRAF [Concomitant]
     Dosage: 1 MG, 8QD
     Route: 048
  5. MYFORTIC [Suspect]
     Indication: RENAL TRANSPLANT
     Dosage: 180 MG, 6QD
     Route: 048
  6. FUROSEMIDE [Concomitant]
     Dosage: 20 MG, QD

REACTIONS (1)
  - RENAL FUNCTION TEST ABNORMAL [None]
